FAERS Safety Report 19616142 (Version 1)
Quarter: 2021Q3

REPORT INFORMATION
  Report Type: Spontaneous
  Country: US (occurrence: US)
  Receive Date: 20210727
  Receipt Date: 20210727
  Transmission Date: 20211014
  Serious: No
  Sender: FDA-Public Use
  Company Number: US-ABBVIE-21K-163-3965402-00

PATIENT
  Sex: Female

DRUGS (2)
  1. BIOTIN [Suspect]
     Active Substance: BIOTIN
     Indication: PRODUCT USED FOR UNKNOWN INDICATION
     Route: 065
  2. SYNTHROID [Suspect]
     Active Substance: LEVOTHYROXINE SODIUM
     Indication: HYPOTHYROIDISM
     Route: 048

REACTIONS (7)
  - Thyroid function test abnormal [Not Recovered/Not Resolved]
  - Unevaluable event [Unknown]
  - Hyperthyroidism [Unknown]
  - Headache [Unknown]
  - Hypothyroidism [Not Recovered/Not Resolved]
  - Thyroid disorder [Unknown]
  - Diarrhoea [Not Recovered/Not Resolved]
